FAERS Safety Report 4588504-2 (Version None)
Quarter: 2005Q1

REPORT INFORMATION
  Report Type: 
  Country: None (occurrence: None)
  Receive Date: 20050215
  Receipt Date: 20050215
  Transmission Date: 20050727
  Serious: Yes (Life-Threatening)
  Sender: FDA-Public Use
  Company Number: None

PATIENT
  Age: 47 Year
  Sex: Male
  Weight: 150 kg

DRUGS (11)
  1. DROTRECOGIN ALFA    5MG/VIAL    ELI LILLY [Suspect]
     Indication: MULTI-ORGAN FAILURE
     Dosage: 24 MCG/KG/HR    INTRAVENOU
     Route: 042
     Dates: start: 20050211, end: 20050214
  2. DROTRECOGIN ALFA    5MG/VIAL    ELI LILLY [Suspect]
     Indication: SEPTIC SHOCK
     Dosage: 24 MCG/KG/HR    INTRAVENOU
     Route: 042
     Dates: start: 20050211, end: 20050214
  3. LEVOFLOXACIN [Concomitant]
  4. VANCOMYCIN [Concomitant]
  5. OXACILLIN [Concomitant]
  6. DOPAMINE [Concomitant]
  7. NOREPINEPHRINE [Concomitant]
  8. PROPOFOL [Concomitant]
  9. ESMOLOL HCL [Concomitant]
  10. CEFEPIME [Concomitant]
  11. METRONIDAZOLE [Concomitant]

REACTIONS (3)
  - CATHETER RELATED COMPLICATION [None]
  - PLATELET COUNT INCREASED [None]
  - SECRETION DISCHARGE [None]
